FAERS Safety Report 5466115-4 (Version None)
Quarter: 2007Q3

REPORT INFORMATION
  Report Type: 
  Country: None (occurrence: None)
  Receive Date: 20070924
  Receipt Date: 20070917
  Transmission Date: 20080115
  Serious: Yes (Hospitalization, Other)
  Sender: FDA-Public Use
  Company Number: US-PFIZER INC-2006151510

PATIENT
  Sex: Female
  Weight: 81.6 kg

DRUGS (6)
  1. CELEBREX [Suspect]
     Indication: ARTHRITIS
  2. BEXTRA [Suspect]
     Indication: ARTHRITIS
     Dates: start: 20020828
  3. VIOXX [Suspect]
     Indication: ARTHRALGIA
     Route: 048
  4. PROPRANOLOL [Concomitant]
     Dates: start: 20000927, end: 20010624
  5. AMITRIPTYLINE HCL [Concomitant]
     Dates: start: 19990615, end: 20011015
  6. PREDNISONE [Concomitant]
     Dates: start: 19990824, end: 20021112

REACTIONS (1)
  - MYOCARDIAL INFARCTION [None]
